FAERS Safety Report 6693133-0 (Version None)
Quarter: 2010Q2

REPORT INFORMATION
  Report Type: 
  Country: None (occurrence: None)
  Receive Date: 20100422
  Receipt Date: 20100415
  Transmission Date: 20101027
  Serious: Yes (Hospitalization)
  Sender: FDA-Public Use
  Company Number: DE-ABBOTT-10P-062-0639046-00

PATIENT
  Sex: Male
  Weight: 91 kg

DRUGS (2)
  1. KALETRA [Suspect]
     Indication: HIV INFECTION
     Dosage: DAILY DOSE: 4 TABLETS
     Route: 048
     Dates: start: 20071207
  2. TRUVADA [Concomitant]
     Indication: HIV INFECTION
     Route: 048
     Dates: start: 20071207

REACTIONS (1)
  - KNEE OPERATION [None]
